FAERS Safety Report 14227481 (Version 2)
Quarter: 2018Q1

REPORT INFORMATION
  Report Type: Spontaneous
  Country: DE (occurrence: DE)
  Receive Date: 20171127
  Receipt Date: 20180104
  Transmission Date: 20180508
  Serious: Yes (Hospitalization, Other)
  Sender: FDA-Public Use
  Company Number: DE-BAYER-2017-221007

PATIENT
  Age: 39 Year
  Sex: Female
  Weight: 57 kg

DRUGS (2)
  1. CIPROFLOXACIN MONOHYDROCHLORIDE [Suspect]
     Active Substance: CIPROFLOXACIN
     Indication: INFLUENZA
     Dosage: 500 MG, BID
     Route: 048
     Dates: start: 20171018, end: 20171024
  2. CIPROFLOXACIN MONOHYDROCHLORIDE [Suspect]
     Active Substance: CIPROFLOXACIN
     Dosage: 750 MG, QD
     Route: 048
     Dates: start: 20171101, end: 20171102

REACTIONS (23)
  - Tremor [Unknown]
  - Fatigue [Unknown]
  - Hypoaesthesia [Unknown]
  - Restlessness [Unknown]
  - Arrhythmia [Unknown]
  - Mobility decreased [Unknown]
  - Loss of personal independence in daily activities [Unknown]
  - Colitis ulcerative [Unknown]
  - Chest discomfort [Unknown]
  - Myalgia [Unknown]
  - Hyperhidrosis [Unknown]
  - Feeling cold [Unknown]
  - Tendon pain [Unknown]
  - Feeling cold [Unknown]
  - Facial pain [Unknown]
  - Joint stiffness [Unknown]
  - Dysphagia [Unknown]
  - Diarrhoea haemorrhagic [Unknown]
  - Headache [Unknown]
  - Anxiety [Unknown]
  - Arthralgia [Unknown]
  - Dyspnoea [Unknown]
  - Gastrointestinal pain [Unknown]

NARRATIVE: CASE EVENT DATE: 20171021
